FAERS Safety Report 18025728 (Version 1)
Quarter: 2020Q3

REPORT INFORMATION
  Report Type: Spontaneous
  Country: RU (occurrence: RU)
  Receive Date: 20200715
  Receipt Date: 20200715
  Transmission Date: 20201103
  Serious: Yes (Other)
  Sender: FDA-Public Use
  Company Number: RU-PFIZER INC-2020266006

PATIENT
  Sex: Female

DRUGS (1)
  1. ETULSI [Suspect]
     Active Substance: PALBOCICLIB
     Dosage: 125 MG
     Route: 048

REACTIONS (3)
  - Blindness unilateral [Unknown]
  - Blood test abnormal [Unknown]
  - Lacrimation increased [Unknown]
